FAERS Safety Report 4358229-7 (Version None)
Quarter: 2004Q2

REPORT INFORMATION
  Report Type: 
  Country: None (occurrence: None)
  Receive Date: 20040513
  Receipt Date: 20040513
  Transmission Date: 20050107
  Serious: Yes (Hospitalization)
  Sender: FDA-Public Use
  Company Number: None

PATIENT
  Age: 57 Year
  Sex: Male
  Weight: 87 kg

DRUGS (1)
  1. NAPROSYN [Suspect]
     Dosage: 500 MG BID ORAL
     Route: 048
     Dates: start: 20040110, end: 20040217

REACTIONS (2)
  - MENINGITIS [None]
  - NIGHT SWEATS [None]
